FAERS Safety Report 20595450 (Version 1)
Quarter: 2022Q1

REPORT INFORMATION
  Report Type: Spontaneous
  Country: IT (occurrence: IT)
  Receive Date: 20220315
  Receipt Date: 20220315
  Transmission Date: 20220423
  Serious: Yes (Life-Threatening, Hospitalization, Other)
  Sender: FDA-Public Use
  Company Number: IT-MLMSERVICE-20220225-3399171-1

PATIENT
  Age: 53 Year
  Sex: Female

DRUGS (1)
  1. HYDROXYCHLOROQUINE [Suspect]
     Active Substance: HYDROXYCHLOROQUINE
     Indication: COVID-19

REACTIONS (11)
  - Left ventricular dysfunction [Recovering/Resolving]
  - Haemodynamic instability [Recovered/Resolved]
  - Electrocardiogram ST segment elevation [Recovering/Resolving]
  - Electrocardiogram T wave inversion [Recovered/Resolved]
  - Akinesia [Recovering/Resolving]
  - Stress cardiomyopathy [Recovered/Resolved]
  - Electrocardiogram T wave biphasic [Recovering/Resolving]
  - Electrocardiogram QT prolonged [Recovered/Resolved]
  - Coronary artery stenosis [Recovering/Resolving]
  - Arteriosclerosis coronary artery [Recovering/Resolving]
  - Off label use [Unknown]
